FAERS Safety Report 23628408 (Version 1)
Quarter: 2024Q1

REPORT INFORMATION
  Report Type: Spontaneous
  Country: US (occurrence: US)
  Receive Date: 20240313
  Receipt Date: 20240313
  Transmission Date: 20240410
  Serious: No
  Sender: FDA-Public Use
  Company Number: US-SA-SAC20240308000132

PATIENT
  Age: 61 Year
  Sex: Female

DRUGS (17)
  1. DUPIXENT [Suspect]
     Active Substance: DUPILUMAB
     Indication: Dermatitis atopic
     Dosage: 300 MG, QOW
     Route: 058
     Dates: start: 20201215, end: 2024
  2. ATORVASTATIN [Concomitant]
     Active Substance: ATORVASTATIN
  3. LOSARTAN [Concomitant]
     Active Substance: LOSARTAN
  4. TRIAMCINOLONE [Concomitant]
     Active Substance: TRIAMCINOLONE
  5. FUROSEMIDE [Concomitant]
     Active Substance: FUROSEMIDE
  6. LEVOTHYROXINE [Concomitant]
     Active Substance: LEVOTHYROXINE\LEVOTHYROXINE SODIUM
  7. MONTELUKAST [Concomitant]
     Active Substance: MONTELUKAST SODIUM
  8. CLONIDINE [Concomitant]
     Active Substance: CLONIDINE
  9. POTASSIUM [Concomitant]
     Active Substance: POTASSIUM
  10. VITAMIN D3 [Concomitant]
     Active Substance: CHOLECALCIFEROL
  11. ADVAIR HFA [Concomitant]
     Active Substance: FLUTICASONE PROPIONATE\SALMETEROL XINAFOATE
  12. FRANKINCENSE [Concomitant]
  13. PRIMROSE [Concomitant]
  14. URTICA DIOICA LEAF [Concomitant]
     Active Substance: URTICA DIOICA LEAF
  15. PEPPERMINT [MENTHA X PIPERITA] [Concomitant]
  16. ROSEMARY [SALVIA ROSMARINUS] [Concomitant]
  17. HERBALS\LAVANDULA ANGUSTIFOLIA WHOLE [Concomitant]
     Active Substance: HERBALS\LAVANDULA ANGUSTIFOLIA WHOLE

REACTIONS (4)
  - Asthma [Unknown]
  - Cellulitis [Unknown]
  - Scratch [Unknown]
  - Eczema [Unknown]

NARRATIVE: CASE EVENT DATE: 20240101
